FAERS Safety Report 25338474 (Version 1)
Quarter: 2025Q2

REPORT INFORMATION
  Report Type: Spontaneous
  Country: US (occurrence: US)
  Receive Date: 20250520
  Receipt Date: 20250520
  Transmission Date: 20250716
  Serious: No
  Sender: SANOFI AVENTIS
  Company Number: US-SANOFI-02523610

PATIENT
  Sex: Female

DRUGS (2)
  1. LANTUS [Suspect]
     Active Substance: INSULIN GLARGINE
     Indication: Diabetes mellitus
  2. NOVOLIN R [Concomitant]
     Active Substance: INSULIN HUMAN

REACTIONS (2)
  - Blood glucose increased [Unknown]
  - Intentional product misuse [Unknown]
